FAERS Safety Report 7952438-3 (Version None)
Quarter: 2011Q4

REPORT INFORMATION
  Report Type: 
  Country: None (occurrence: None)
  Receive Date: 20111201
  Receipt Date: 20111124
  Transmission Date: 20120403
  Serious: Yes (Other)
  Sender: FDA-Public Use
  Company Number: JP-GLAXOSMITHKLINE-B0764285A

PATIENT
  Sex: Female

DRUGS (9)
  1. UNKNOWN DRUG [Concomitant]
     Dosage: 15MG PER DAY
     Route: 048
     Dates: start: 20111108
  2. FUROSEMIDE [Concomitant]
     Dosage: 40MG PER DAY
     Route: 048
  3. LISINOPRIL [Concomitant]
     Dosage: 2.5MG PER DAY
     Route: 048
  4. PAXIL [Suspect]
     Indication: DEPRESSION
     Dosage: 40MG PER DAY
     Route: 048
  5. TORSEMIDE [Concomitant]
     Dosage: 8MG PER DAY
     Route: 048
  6. AMITRIPTYLINE HCL [Suspect]
     Indication: PRODUCT USED FOR UNKNOWN INDICATION
     Dosage: 140MG PER DAY
     Route: 048
     Dates: end: 20111118
  7. LANSOPRAZOLE [Concomitant]
     Dosage: 15MG PER DAY
     Route: 048
     Dates: start: 20111108
  8. AMITRIPTYLINE HCL [Suspect]
     Dosage: 40MG PER DAY
     Route: 048
  9. CARVEDILOL [Concomitant]
     Dosage: 1.25MG PER DAY
     Route: 048
     Dates: start: 20111108

REACTIONS (1)
  - ELECTROCARDIOGRAM QT PROLONGED [None]
